FAERS Safety Report 21075282 (Version 1)
Quarter: 2022Q3

REPORT INFORMATION
  Report Type: Spontaneous
  Country: US (occurrence: None)
  Receive Date: 20220712
  Receipt Date: 20220712
  Transmission Date: 20221027
  Serious: No
  Sender: FDA-Public Use
  Company Number: None

PATIENT
  Age: 23 Year
  Sex: Male
  Weight: 93.6 kg

DRUGS (1)
  1. PAXLOVID [Suspect]
     Active Substance: NIRMATRELVIR\RITONAVIR
     Indication: COVID-19 treatment
     Dosage: OTHER QUANTITY : 1 SET OF TABLETS;?FREQUENCY : EVERY 12 HOURS;?
     Route: 048
     Dates: start: 20220706, end: 20220711

REACTIONS (3)
  - Diarrhoea [None]
  - Haemorrhoidal haemorrhage [None]
  - Hypophagia [None]

NARRATIVE: CASE EVENT DATE: 20220708
